FAERS Safety Report 7350500-X (Version None)
Quarter: 2011Q1

REPORT INFORMATION
  Report Type: 
  Country: None (occurrence: None)
  Receive Date: 20110314
  Receipt Date: 20110310
  Transmission Date: 20110831
  Serious: Yes (Life-Threatening, Hospitalization)
  Sender: FDA-Public Use
  Company Number: AU-PFIZER INC-2011052550

PATIENT

DRUGS (1)
  1. CHAMPIX [Suspect]
     Dosage: 0.1 MG, DAILY
     Dates: start: 20101021, end: 20101101

REACTIONS (1)
  - BIPOLAR I DISORDER [None]
